FAERS Safety Report 5054644-7 (Version None)
Quarter: 2006Q2

REPORT INFORMATION
  Report Type: 
  Country: None (occurrence: None)
  Receive Date: 20060614
  Receipt Date: 20060123
  Transmission Date: 20061013
  Serious: No
  Sender: FDA-Public Use
  Company Number: US200601003890

PATIENT
  Age: 58 Year
  Sex: Male

DRUGS (1)
  1. CIALIS [Suspect]
     Dosage: 20 MG,
     Dates: start: 20060120

REACTIONS (2)
  - MUSCLE SPASMS [None]
  - MYALGIA [None]
